FAERS Safety Report 4859127-2 (Version None)
Quarter: 2005Q4

REPORT INFORMATION
  Report Type: 
  Country: None (occurrence: None)
  Receive Date: 20051219
  Receipt Date: 20050919
  Transmission Date: 20060501
  Serious: No
  Sender: FDA-Public Use
  Company Number: US-GLAXOSMITHKLINE-A0574757A

PATIENT
  Sex: Female

DRUGS (1)
  1. NICODERM CQ [Suspect]

REACTIONS (7)
  - APPLICATION SITE ERYTHEMA [None]
  - APPLICATION SITE URTICARIA [None]
  - DRUG ABUSER [None]
  - ILL-DEFINED DISORDER [None]
  - NAUSEA [None]
  - NICOTINE DEPENDENCE [None]
  - SKIN DISCOLOURATION [None]
